FAERS Safety Report 11174496 (Version 2)
Quarter: 2015Q3

REPORT INFORMATION
  Report Type: Spontaneous
  Country: IT (occurrence: IT)
  Receive Date: 20150609
  Receipt Date: 20150915
  Transmission Date: 20151125
  Serious: Yes (Other)
  Sender: FDA-Public Use
  Company Number: PHHY2015IT063261

PATIENT
  Age: 55 Year
  Sex: Female

DRUGS (5)
  1. ALPRAZOLAM. [Concomitant]
     Active Substance: ALPRAZOLAM
     Indication: INSOMNIA
     Dosage: 0.5 MG, UNK
     Route: 065
  2. METHYLPREDNISOLONE. [Suspect]
     Active Substance: METHYLPREDNISOLONE
     Dosage: 4 MG, QD
     Route: 065
  3. SATIVEX [Suspect]
     Active Substance: NABIXIMOLS
     Indication: MUSCLE SPASTICITY
     Dosage: 10 DF, QD (10 PUFFS PER DAY)
     Route: 048
  4. BACLOFEN. [Suspect]
     Active Substance: BACLOFEN
     Indication: MUSCLE SPASTICITY
     Dosage: 50 MG, QD
     Route: 048
  5. METHYLPREDNISOLONE. [Suspect]
     Active Substance: METHYLPREDNISOLONE
     Indication: PRODUCT USED FOR UNKNOWN INDICATION
     Dosage: 8 MG, QD
     Route: 065

REACTIONS (16)
  - Ataxia [Unknown]
  - Hypertonia [Unknown]
  - Suicidal ideation [Unknown]
  - Hyperreflexia [Unknown]
  - Hemiparesis [Unknown]
  - Psychotic behaviour [Unknown]
  - Bipolar I disorder [Unknown]
  - Muscle spasticity [Unknown]
  - Substance-induced mood disorder [Unknown]
  - Hypoaesthesia [Unknown]
  - Insomnia [Unknown]
  - Micturition urgency [Unknown]
  - Nuclear magnetic resonance imaging brain abnormal [Unknown]
  - Therapeutic response decreased [Unknown]
  - Abnormal behaviour [Unknown]
  - Cerebellar syndrome [Unknown]
